FAERS Safety Report 8356310-9 (Version None)
Quarter: 2012Q2

REPORT INFORMATION
  Report Type: 
  Country: None (occurrence: None)
  Receive Date: 20120514
  Receipt Date: 20120501
  Transmission Date: 20120825
  Serious: Yes (Other)
  Sender: FDA-Public Use
  Company Number: US-SANOFI-AVENTIS-2012SA030731

PATIENT
  Sex: Male

DRUGS (1)
  1. MULTAQ [Suspect]
     Indication: ATRIAL FIBRILLATION
     Route: 048
     Dates: start: 20100101

REACTIONS (4)
  - ANGINA PECTORIS [None]
  - PRODUCT COUNTERFEIT [None]
  - GAIT DISTURBANCE [None]
  - PRODUCT QUALITY ISSUE [None]
